FAERS Safety Report 6592860-3 (Version None)
Quarter: 2010Q1

REPORT INFORMATION
  Report Type: 
  Country: None (occurrence: None)
  Receive Date: 20100212
  Receipt Date: 20100202
  Transmission Date: 20100710
  Serious: Yes (Hospitalization)
  Sender: FDA-Public Use
  Company Number: CLOF-1000654

PATIENT
  Age: 72 Year
  Sex: Male

DRUGS (9)
  1. EVOLTRA (CLOFARABINE) SOLUTION FOR INFUSION [Suspect]
     Indication: ACUTE MYELOID LEUKAEMIA
     Dates: start: 20090525
  2. DAUNORUBICIN HCL [Suspect]
     Indication: ACUTE MYELOID LEUKAEMIA
     Dates: start: 20090525
  3. FLUDARABINE(FLUDARABINE PHOSPHATE) INTRAVENOUS INFUSION, UNK [Suspect]
     Indication: ACUTE MYELOID LEUKAEMIA
  4. MULTIVITAMIN [Concomitant]
  5. CIPROXIN (CIPROFLOXACIN) [Concomitant]
  6. FLUCONAZOLE [Concomitant]
  7. PINEX (PARACETAMOL) [Concomitant]
  8. IMOCLONE (ZOPICLONE) [Concomitant]
  9. CLINDAMYCIN HCL [Concomitant]

REACTIONS (8)
  - ALANINE AMINOTRANSFERASE INCREASED [None]
  - BACTERAEMIA [None]
  - BLOOD ALKALINE PHOSPHATASE INCREASED [None]
  - BLOOD LACTATE DEHYDROGENASE INCREASED [None]
  - DEEP VEIN THROMBOSIS [None]
  - DEVICE RELATED INFECTION [None]
  - GASTRITIS [None]
  - NEUTROPENIA [None]
